FAERS Safety Report 5347694-4 (Version None)
Quarter: 2007Q2

REPORT INFORMATION
  Report Type: 
  Country: None (occurrence: None)
  Receive Date: 20070606
  Receipt Date: 20070524
  Transmission Date: 20071010
  Serious: Yes (Hospitalization, Other)
  Sender: FDA-Public Use
  Company Number: GB-ASTRAZENECA-2005GB00348

PATIENT
  Age: 25875 Day
  Sex: Female
  Weight: 70.7 kg

DRUGS (7)
  1. NOLVADEX [Suspect]
     Indication: BREAST CANCER
     Route: 048
     Dates: start: 19970509, end: 20021018
  2. LANSOPRAZOLE [Concomitant]
     Indication: DUODENAL ULCER
     Dates: start: 20000128
  3. VIOXX [Concomitant]
     Indication: ARTHRITIS
     Dates: start: 20020102
  4. CO-DYDRAMOL [Concomitant]
     Indication: ARTHRITIS
     Dates: start: 20020102
  5. PREDNISOLONE [Concomitant]
     Indication: RHEUMATOID ARTHRITIS
     Dates: start: 20020103
  6. ALENDRONATE SODIUM [Concomitant]
     Indication: OSTEOPOROSIS PROPHYLAXIS
     Dates: start: 20020103
  7. PARACETAMOL [Concomitant]
     Indication: ARTHRITIS
     Dates: start: 20020215

REACTIONS (1)
  - OSTEOARTHRITIS [None]
